FAERS Safety Report 6038580-5 (Version None)
Quarter: 2009Q1

REPORT INFORMATION
  Report Type: 
  Country: None (occurrence: None)
  Receive Date: 20090115
  Receipt Date: 20090113
  Transmission Date: 20090719
  Serious: Yes (Hospitalization)
  Sender: FDA-Public Use
  Company Number: A0741819B

PATIENT
  Age: 40 Year
  Sex: Female
  Weight: 94.6 kg

DRUGS (3)
  1. LAPATINIB [Suspect]
     Dosage: 1250MG PER DAY
     Route: 048
     Dates: start: 20080502
  2. TOPOTECAN [Suspect]
     Dosage: 3.2MGM2 CYCLIC
     Route: 042
     Dates: start: 20080502, end: 20080529
  3. CAPECITABINE [Suspect]
     Dosage: 1000MGM2 CYCLIC
     Route: 048
     Dates: start: 20080612

REACTIONS (3)
  - CELLULITIS [None]
  - CHILLS [None]
  - PYREXIA [None]
